FAERS Safety Report 11717089 (Version 2)
Quarter: 2016Q1

REPORT INFORMATION
  Report Type: Report from Study
  Country: JP (occurrence: JP)
  Receive Date: 20151109
  Receipt Date: 20160308
  Transmission Date: 20160525
  Serious: Yes (Death, Life-Threatening, Hospitalization)
  Sender: FDA-Public Use
  Company Number: JP-EISAI MEDICAL RESEARCH-EC-2015-011860

PATIENT
  Age: 79 Year
  Sex: Female
  Weight: 42 kg

DRUGS (14)
  1. CELECOX [Concomitant]
     Active Substance: CELECOXIB
  2. HIRUDOID [Concomitant]
     Active Substance: GLYCOSAMINOGLYCANS
  3. FENTOS [Concomitant]
     Active Substance: FENTANYL
  4. LENVIMA [Suspect]
     Active Substance: LENVATINIB
     Indication: THYROID CANCER
     Route: 048
     Dates: start: 20150928, end: 20151008
  5. SENNOSIDE [Concomitant]
     Active Substance: SENNOSIDES
  6. LOPEMIN [Concomitant]
     Active Substance: LOPERAMIDE HYDROCHLORIDE
  7. DEPAS [Concomitant]
     Active Substance: ETIZOLAM
  8. COCARL [Concomitant]
     Active Substance: ACETAMINOPHEN
  9. RINDERON V [Concomitant]
     Active Substance: BETAMETHASONE VALERATE
  10. BISONO [Concomitant]
     Active Substance: BISOPROLOL
  11. NEXIUM [Concomitant]
     Active Substance: ESOMEPRAZOLE MAGNESIUM
  12. AZILVA [Concomitant]
     Active Substance: AZILSARTAN KAMEDOXOMIL
  13. BROTIZOLAM [Concomitant]
     Active Substance: BROTIZOLAM
  14. RAYNANON [Concomitant]

REACTIONS (4)
  - Impaired healing [Not Recovered/Not Resolved]
  - Haemorrhage [Not Recovered/Not Resolved]
  - Cardiac failure [Fatal]
  - Pneumothorax [Not Recovered/Not Resolved]

NARRATIVE: CASE EVENT DATE: 20151009
